FAERS Safety Report 20748417 (Version 1)
Quarter: 2022Q2

REPORT INFORMATION
  Report Type: Report from Study
  Country: US (occurrence: US)
  Receive Date: 20220426
  Receipt Date: 20220426
  Transmission Date: 20220721
  Serious: No
  Sender: FDA-Public Use
  Company Number: US-ACADIA PHARMACEUTICALS INC.-ACA-2022-PIM-001186

PATIENT
  Sex: Male

DRUGS (2)
  1. NUPLAZID [Suspect]
     Active Substance: PIMAVANSERIN TARTRATE
     Indication: Parkinson^s disease
     Dosage: 34 MILLIGRAM, QD
     Route: 048
     Dates: start: 202201
  2. SCOPOLAMINE [Suspect]
     Active Substance: SCOPOLAMINE
     Route: 062

REACTIONS (4)
  - Delirium [Unknown]
  - Salivary hypersecretion [Unknown]
  - Balance disorder [Unknown]
  - Condition aggravated [Unknown]
